FAERS Safety Report 9557936 (Version 2)
Quarter: 2013Q3

REPORT INFORMATION
  Report Type: Report from Study
  Country: US (occurrence: US)
  Receive Date: 20130926
  Receipt Date: 20130926
  Transmission Date: 20140515
  Serious: Yes (Other)
  Sender: FDA-Public Use
  Company Number: US-ABBVIE-10P-163-0687552-00

PATIENT
  Age: 38 Year
  Sex: Female
  Weight: 90.8 kg

DRUGS (17)
  1. HUMIRA 40 MG/ 0.8 ML PRE-FILLED SYRINGE [Suspect]
     Indication: CROHN^S DISEASE
     Route: 058
     Dates: start: 20100217, end: 201009
  2. HUMIRA 40 MG/ 0.8 ML PRE-FILLED SYRINGE [Suspect]
     Dates: start: 20101119, end: 201012
  3. LYRICA [Suspect]
     Indication: FIBROMYALGIA
     Dates: start: 2012
  4. 6-MP [Concomitant]
     Indication: PRODUCT USED FOR UNKNOWN INDICATION
     Route: 048
  5. CELEBREX [Concomitant]
     Indication: RHEUMATOID ARTHRITIS
     Route: 048
     Dates: end: 2012
  6. PRO BIOTIC PEARL [Concomitant]
     Indication: PRODUCT USED FOR UNKNOWN INDICATION
  7. VITAMIN D [Concomitant]
     Indication: PRODUCT USED FOR UNKNOWN INDICATION
  8. FERGON [Concomitant]
     Indication: PRODUCT USED FOR UNKNOWN INDICATION
     Route: 048
  9. ESTER C [Concomitant]
     Indication: PRODUCT USED FOR UNKNOWN INDICATION
     Route: 048
  10. METANX [Concomitant]
     Indication: STOMA CARE
  11. TYLENOL [Concomitant]
     Indication: PRODUCT USED FOR UNKNOWN INDICATION
  12. MULTIVITAMIN [Concomitant]
     Indication: PRODUCT USED FOR UNKNOWN INDICATION
  13. BENADRYL [Concomitant]
     Indication: PRURITUS
     Route: 048
  14. LOW ACID ORANGE JUICE [Concomitant]
     Indication: PRODUCT USED FOR UNKNOWN INDICATION
  15. DEXAMETHASONE [Concomitant]
     Indication: PYODERMA
     Dosage: CRUSH AND SPRINKLE AROUND STOMA
  16. AMITRYPTILINE [Concomitant]
     Indication: PRODUCT USED FOR UNKNOWN INDICATION
     Dosage: QPM
     Dates: start: 2012
  17. ZYRTEC [Concomitant]
     Indication: SEASONAL ALLERGY

REACTIONS (24)
  - Ovarian cyst [Recovered/Resolved]
  - Benign ovarian tumour [Recovering/Resolving]
  - Stoma site infection [Recovered/Resolved]
  - Pyrexia [Recovered/Resolved]
  - Headache [Recovered/Resolved]
  - Cough [Recovered/Resolved]
  - Sneezing [Recovered/Resolved]
  - Bladder spasm [Recovered/Resolved]
  - Weight increased [Recovering/Resolving]
  - Menorrhagia [Recovered/Resolved]
  - Pruritus [Recovered/Resolved]
  - Pyoderma gangrenosum [Recovered/Resolved]
  - Cystitis [Recovered/Resolved]
  - Rheumatoid arthritis [Recovering/Resolving]
  - Muscular weakness [Unknown]
  - Weight increased [Recovering/Resolving]
  - Menstrual disorder [Recovering/Resolving]
  - Wound infection [Recovered/Resolved]
  - Impaired healing [Not Recovered/Not Resolved]
  - Fibromyalgia [Recovering/Resolving]
  - Malabsorption [Unknown]
  - Gastroenteritis viral [Recovering/Resolving]
  - Crohn^s disease [Recovering/Resolving]
  - Diarrhoea haemorrhagic [Recovered/Resolved]
